FAERS Safety Report 6566464-2 (Version None)
Quarter: 2010Q1

REPORT INFORMATION
  Report Type: 
  Country: None (occurrence: None)
  Receive Date: 20100202
  Receipt Date: 20100127
  Transmission Date: 20100710
  Serious: Yes (Death, Life-Threatening)
  Sender: FDA-Public Use
  Company Number: US-GILEAD-2010-0026717

PATIENT
  Sex: Female
  Weight: 52.7 kg

DRUGS (10)
  1. LETAIRIS [Suspect]
     Indication: PULMONARY ARTERIAL HYPERTENSION
     Route: 048
     Dates: start: 20090312, end: 20100110
  2. COUMADIN [Concomitant]
  3. LASIX [Concomitant]
  4. STRATTERA [Concomitant]
  5. TOPROL-XL [Concomitant]
  6. SINGULAIR [Concomitant]
  7. BENTYL [Concomitant]
  8. TRILEPTAL [Concomitant]
  9. K-DUR [Concomitant]
  10. CELEXA [Concomitant]

REACTIONS (1)
  - DEATH [None]
